FAERS Safety Report 7621109-5 (Version None)
Quarter: 2011Q3

REPORT INFORMATION
  Report Type: 
  Country: None (occurrence: None)
  Receive Date: 20110719
  Receipt Date: 20101129
  Transmission Date: 20111222
  Serious: No
  Sender: FDA-Public Use
  Company Number: US-KINGPHARMUSA00001-K201001449

PATIENT
  Sex: Female

DRUGS (4)
  1. LEVOXYL [Suspect]
     Indication: HYPOTHYROIDISM
     Dosage: 12.5 MCG, QD
     Route: 048
     Dates: start: 20101027
  2. MULTI-VITAMINS [Concomitant]
  3. METOPROLOL TARTRATE [Suspect]
     Indication: PALPITATIONS
     Dosage: UNK
     Route: 048
     Dates: start: 20100901
  4. VITAMIN D [Concomitant]

REACTIONS (2)
  - PARAESTHESIA [None]
  - HYPOAESTHESIA [None]
